FAERS Safety Report 5521689-X (Version None)
Quarter: 2007Q4

REPORT INFORMATION
  Report Type: 
  Country: None (occurrence: None)
  Receive Date: 20071120
  Receipt Date: 20071114
  Transmission Date: 20080405
  Serious: Yes (Other)
  Sender: FDA-Public Use
  Company Number: PHBS2007JP18068

PATIENT
  Age: 71 Year
  Sex: Female

DRUGS (3)
  1. AREDIA [Suspect]
     Indication: MULTIPLE MYELOMA
     Route: 042
  2. ALENDRONATE SODIUM [Concomitant]
     Indication: MULTIPLE MYELOMA
     Route: 048
  3. STEROIDS NOS [Concomitant]

REACTIONS (5)
  - BONE DISORDER [None]
  - BONE SWELLING [None]
  - OSTEONECROSIS [None]
  - PAIN IN JAW [None]
  - SURGERY [None]
